FAERS Safety Report 11585027 (Version 2)
Quarter: 2015Q4

REPORT INFORMATION
  Report Type: Spontaneous
  Country: AR (occurrence: AR)
  Receive Date: 20151001
  Receipt Date: 20151029
  Transmission Date: 20160304
  Serious: Yes (Hospitalization, Other)
  Sender: FDA-Public Use
  Company Number: AR-PFIZER INC-2015318606

PATIENT
  Age: 66 Year
  Sex: Male

DRUGS (8)
  1. POLPER B12 [Concomitant]
     Dosage: UNK
     Dates: start: 201509
  2. T4 [Concomitant]
     Active Substance: LEVOTHYROXINE
     Dosage: UNK
     Dates: start: 2013
  3. SECOTEX OCAS [Concomitant]
     Active Substance: TAMSULOSIN
     Dosage: UNK
     Dates: start: 2011
  4. OMEPRAZOL [Concomitant]
     Active Substance: OMEPRAZOLE
     Dosage: UNK
     Dates: start: 2014
  5. OXICODONA [Concomitant]
     Dosage: UNK
     Dates: start: 2014
  6. PARACETAMOL [Concomitant]
     Active Substance: ACETAMINOPHEN
     Dosage: UNK
     Dates: start: 2014
  7. INLYTA [Suspect]
     Active Substance: AXITINIB
     Indication: RENAL CANCER
     Dosage: 5 MG, UNK
     Dates: start: 20140925, end: 201509
  8. NAPROXENO [Concomitant]
     Dosage: UNK
     Dates: start: 2014

REACTIONS (2)
  - Bronchospasm [Recovered/Resolved]
  - Anaemia [Unknown]

NARRATIVE: CASE EVENT DATE: 201509
